FAERS Safety Report 4737188-9 (Version None)
Quarter: 2005Q3

REPORT INFORMATION
  Report Type: 
  Country: None (occurrence: None)
  Receive Date: 20050808
  Receipt Date: 20050412
  Transmission Date: 20060218
  Serious: Yes (Hospitalization, Other)
  Sender: FDA-Public Use
  Company Number: US-MERCK-0504USA01830

PATIENT
  Age: 55 Year
  Sex: Male
  Weight: 70 kg

DRUGS (5)
  1. VIOXX [Suspect]
     Indication: TENDONITIS
     Route: 048
     Dates: start: 20010505, end: 20030127
  2. MONOPRIL [Concomitant]
     Indication: HYPERTENSION
     Route: 065
  3. DILACOR XR [Concomitant]
     Route: 065
  4. ZANTAC 300 [Concomitant]
     Indication: GASTROOESOPHAGEAL REFLUX DISEASE
     Route: 065
  5. HYDROCHLOROTHIAZIDE [Concomitant]
     Route: 065

REACTIONS (14)
  - ANGINA UNSTABLE [None]
  - CORONARY ARTERY ATHEROSCLEROSIS [None]
  - COUGH [None]
  - DYSPEPSIA [None]
  - DYSPNOEA [None]
  - EPIDERMAL NAEVUS [None]
  - HEADACHE [None]
  - LIMB INJURY [None]
  - MYALGIA [None]
  - MYOCARDIAL INFARCTION [None]
  - PIGMENTED NAEVUS [None]
  - POLYTRAUMATISM [None]
  - RECTAL HAEMORRHAGE [None]
  - RHINITIS ALLERGIC [None]
